FAERS Safety Report 4352281-0 (Version None)
Quarter: 2004Q2

REPORT INFORMATION
  Report Type: 
  Country: None (occurrence: None)
  Receive Date: 20040427
  Receipt Date: 20030326
  Transmission Date: 20050107
  Serious: No
  Sender: FDA-Public Use
  Company Number: 2003-104073-NL

PATIENT
  Age: 5200 Year
  Sex: Female

DRUGS (8)
  1. ROCURONIUM [Suspect]
     Indication: HYPOTONIA
     Dosage: DF DAILY
     Dates: start: 19970815
  2. ROCURONIUM [Suspect]
     Indication: INTUBATION
     Dosage: DF DAILY
     Dates: start: 19970815
  3. PROPOFOL [Suspect]
     Indication: INTUBATION
     Dosage: DF DAILY
     Dates: start: 19970815
  4. VERSED [Concomitant]
  5. FENTANYL [Concomitant]
  6. ISOFLURANE [Concomitant]
  7. NEOSTIGMINE [Concomitant]
  8. GLYCOPYRROLATE [Concomitant]

REACTIONS (1)
  - ANAPHYLACTOID REACTION [None]
